FAERS Safety Report 21207697 (Version 2)
Quarter: 2022Q3

REPORT INFORMATION
  Report Type: Spontaneous
  Country: US (occurrence: US)
  Receive Date: 20220812
  Receipt Date: 20220821
  Transmission Date: 20221027
  Serious: No
  Sender: FDA-Public Use
  Company Number: US-SANOFI-01226391

PATIENT
  Age: 74 Year
  Sex: Male

DRUGS (1)
  1. DUPIXENT [Suspect]
     Active Substance: DUPILUMAB
     Indication: Dermatitis
     Dosage: UNK, QOW
     Dates: start: 20211102, end: 20220224

REACTIONS (1)
  - Drug ineffective for unapproved indication [Unknown]
